FAERS Safety Report 4889056-X (Version None)
Quarter: 2005Q4

REPORT INFORMATION
  Report Type: 
  Country: None (occurrence: None)
  Receive Date: 20051215
  Receipt Date: 20050411
  Transmission Date: 20060501
  Serious: Yes (Hospitalization)
  Sender: FDA-Public Use
  Company Number: 2005057583

PATIENT
  Age: 65 Year
  Sex: Female
  Weight: 64.4108 kg

DRUGS (9)
  1. BEXTRA [Suspect]
     Indication: ARTHRITIS
     Dosage: 2 TOTAL, ORAL
     Route: 048
     Dates: start: 20020101, end: 20041001
  2. ZITHROMAX [Suspect]
     Indication: SINUSITIS
     Dosage: ORAL
     Route: 048
     Dates: start: 20030101, end: 20030101
  3. PHENYTOIN SODIUM [Concomitant]
  4. PHENOBARBITAL TAB [Concomitant]
  5. DYAZIDE [Concomitant]
  6. ESTROGENS SOL/INJ [Concomitant]
  7. SIBUTRAMINE HYDROCHLORIDE (SIBUTRAMINE HYDROCHLORIDE) [Concomitant]
  8. LOSARTAN POTASSIUM [Concomitant]
  9. DIAZEPAM [Concomitant]

REACTIONS (6)
  - PAIN [None]
  - PRURITUS [None]
  - RASH [None]
  - SINUSITIS [None]
  - THYROID DISORDER [None]
  - ULCER HAEMORRHAGE [None]
